FAERS Safety Report 10022727 (Version 1)
Quarter: 2014Q1

REPORT INFORMATION
  Report Type: Spontaneous
  Country: US (occurrence: US)
  Receive Date: 20140319
  Receipt Date: 20140319
  Transmission Date: 20141002
  Serious: No
  Sender: FDA-Public Use
  Company Number: US-ACTELION-A-US2014-95968

PATIENT
  Sex: Female

DRUGS (1)
  1. VALCHLOR [Suspect]
     Indication: ACCIDENTAL EXPOSURE TO PRODUCT
     Dosage: 0.016 %, QD
     Route: 061
     Dates: start: 201402

REACTIONS (3)
  - Accidental exposure to product [Unknown]
  - Exposure via inhalation [Unknown]
  - Pruritus [Unknown]
